FAERS Safety Report 20132526 (Version 1)
Quarter: 2021Q4

REPORT INFORMATION
  Report Type: Spontaneous
  Country: BR (occurrence: BR)
  Receive Date: 20211130
  Receipt Date: 20211130
  Transmission Date: 20220303
  Serious: Yes (Other)
  Sender: FDA-Public Use
  Company Number: BR-SCALL-2021-BR-000130

PATIENT
  Sex: Male

DRUGS (1)
  1. DUTASTERIDE\TAMSULOSIN HYDROCHLORIDE [Suspect]
     Active Substance: DUTASTERIDE\TAMSULOSIN HYDROCHLORIDE
     Indication: Hyperplasia
     Route: 065

REACTIONS (3)
  - Near death experience [Unknown]
  - Wrong technique in product usage process [Unknown]
  - Dysphagia [Unknown]
